FAERS Safety Report 9762736 (Version 2)
Quarter: 2013Q4

REPORT INFORMATION
  Report Type: Spontaneous
  Country: US (occurrence: US)
  Receive Date: 20131216
  Receipt Date: 20131223
  Transmission Date: 20140711
  Serious: Yes (Hospitalization)
  Sender: FDA-Public Use
  Company Number: US-ELI_LILLY_AND_COMPANY-US201312003645

PATIENT
  Sex: 0

DRUGS (15)
  1. HUMALOG 25% LISPRO, 75% NPL [Suspect]
     Indication: DIABETES MELLITUS
     Dosage: UNK
     Route: 065
     Dates: start: 2008
  2. DONEPEZIL HCL [Concomitant]
     Dosage: 5 MG, QD
  3. FLUOXETINE HCL [Concomitant]
     Dosage: 40 MG, QD
  4. GABAPENTIN [Concomitant]
     Dosage: 100 MG, EACH EVENING
  5. LEVOTHYROXINE [Concomitant]
     Dosage: 75 UG, UNK
  6. MIRTAZAPINE [Concomitant]
     Dosage: 15 MG, EACH EVENING
  7. MONTELUKAST [Concomitant]
     Dosage: 10 MG, QD
  8. NEXIUM                             /01479302/ [Concomitant]
     Dosage: 40 MG, QD
  9. PROAIR HFA [Concomitant]
  10. OXYGEN [Concomitant]
  11. SPIRIVA HANDIHALER [Concomitant]
     Dosage: 1 DF, QD
  12. TRAMADOL [Concomitant]
     Dosage: 50 MG, UNK
  13. VITAMIN D                          /00107901/ [Concomitant]
     Dosage: 1000 IU, UNK
  14. ATORVASTATIN [Concomitant]
  15. BUSPIRONE [Concomitant]
     Dosage: 5 MG, BID

REACTIONS (3)
  - Fall [Recovered/Resolved]
  - Tremor [Unknown]
  - Motion sickness [Unknown]
